FAERS Safety Report 7554554-7 (Version None)
Quarter: 2011Q2

REPORT INFORMATION
  Report Type: 
  Country: None (occurrence: None)
  Receive Date: 20110617
  Receipt Date: 20110616
  Transmission Date: 20111010
  Serious: Yes (Other)
  Sender: FDA-Public Use
  Company Number: IT-ABBOTT-11P-083-0732687-00

PATIENT
  Age: 10 Year
  Sex: Female

DRUGS (2)
  1. CALCITRIOL [Suspect]
     Indication: HYPOPHOSPHATAEMIC RICKETS
  2. PHOSPHATE [Suspect]
     Indication: HYPOPHOSPHATAEMIC RICKETS
     Dosage: 60 MG/KG/DAY

REACTIONS (2)
  - NEPHROCALCINOSIS [None]
  - HYPERPARATHYROIDISM TERTIARY [None]
